FAERS Safety Report 7638186-8 (Version None)
Quarter: 2011Q3

REPORT INFORMATION
  Report Type: 
  Country: None (occurrence: None)
  Receive Date: 20110727
  Receipt Date: 20110719
  Transmission Date: 20111222
  Serious: Yes (Hospitalization, Other)
  Sender: FDA-Public Use
  Company Number: US-BAYER-2011-009186

PATIENT
  Age: 23 Year
  Sex: Female
  Weight: 56.689 kg

DRUGS (4)
  1. YASMIN [Suspect]
     Indication: CONTRACEPTION
     Dosage: UNK
     Dates: start: 20060601, end: 20080701
  2. YAZ [Suspect]
     Indication: CONTRACEPTION
     Dosage: UNK
     Dates: start: 20080801, end: 20091201
  3. NSAID'S [Concomitant]
     Dosage: UNK
     Dates: start: 19990101
  4. ASTHMA/BREATHING MEDICATION [Concomitant]

REACTIONS (7)
  - GALLBLADDER DISORDER [None]
  - PAIN [None]
  - INJURY [None]
  - ABDOMINAL PAIN UPPER [None]
  - DYSPEPSIA [None]
  - BILIARY DYSKINESIA [None]
  - CHOLECYSTITIS [None]
